FAERS Safety Report 8107057-5 (Version None)
Quarter: 2012Q1

REPORT INFORMATION
  Report Type: 
  Country: None (occurrence: None)
  Receive Date: 20120202
  Receipt Date: 20120201
  Transmission Date: 20120608
  Serious: Yes (Other)
  Sender: FDA-Public Use
  Company Number: US-PFIZER INC-2012028160

PATIENT
  Sex: Female
  Weight: 68.027 kg

DRUGS (3)
  1. CHANTIX [Suspect]
     Indication: SMOKING CESSATION THERAPY
     Dosage: 0.5MG, DAILY
     Dates: start: 20101001
  2. CHANTIX [Suspect]
     Dosage: UNK
     Dates: end: 20110401
  3. SYNTHROID [Concomitant]
     Indication: THYROID DISORDER
     Dosage: 0.1 MG, DAILY

REACTIONS (2)
  - DYSPNOEA [None]
  - TOTAL LUNG CAPACITY DECREASED [None]
